FAERS Safety Report 18261581 (Version 1)
Quarter: 2020Q3

REPORT INFORMATION
  Report Type: Spontaneous
  Country: IT (occurrence: IT)
  Receive Date: 20200914
  Receipt Date: 20200914
  Transmission Date: 20201103
  Serious: Yes (Hospitalization)
  Sender: FDA-Public Use
  Company Number: NVSC2020IT247302

PATIENT
  Age: 48 Year
  Sex: Male

DRUGS (2)
  1. QUETIAPINE FUMARATE. [Suspect]
     Active Substance: QUETIAPINE FUMARATE
     Indication: DRUG ABUSE
     Dosage: 6 G, UNKNOWN
     Route: 048
     Dates: start: 20200415, end: 20200415
  2. LORAZEPAM. [Suspect]
     Active Substance: LORAZEPAM
     Indication: DRUG ABUSE
     Dosage: 100 MG, UNKNOWN
     Route: 048
     Dates: start: 20200415, end: 20200415

REACTIONS (4)
  - Sopor [Recovering/Resolving]
  - Agitation [Recovering/Resolving]
  - Drug abuse [Recovering/Resolving]
  - Wheezing [Recovering/Resolving]

NARRATIVE: CASE EVENT DATE: 20200415
